FAERS Safety Report 5027551-3 (Version None)
Quarter: 2006Q2

REPORT INFORMATION
  Report Type: 
  Country: None (occurrence: None)
  Receive Date: 20060616
  Receipt Date: 20060420
  Transmission Date: 20061013
  Serious: No
  Sender: FDA-Public Use
  Company Number: 2006UW07060

PATIENT
  Age: 80 Year
  Sex: Female
  Weight: 50 kg

DRUGS (4)
  1. ARIMIDEX [Suspect]
     Indication: BREAST CANCER FEMALE
     Route: 048
     Dates: start: 20050119
  2. FOSAMAX [Concomitant]
  3. ASPIRIN [Concomitant]
  4. VITAMIN B COMPLEX CAP [Concomitant]

REACTIONS (5)
  - ASTHENOPIA [None]
  - FOREIGN BODY SENSATION IN EYES [None]
  - LOW TENSION GLAUCOMA [None]
  - MIGRAINE [None]
  - PHOTOPSIA [None]
